FAERS Safety Report 5136960-3 (Version None)
Quarter: 2006Q4

REPORT INFORMATION
  Report Type: 
  Country: None (occurrence: None)
  Receive Date: 20061024
  Receipt Date: 20061013
  Transmission Date: 20070319
  Serious: Yes (Other)
  Sender: FDA-Public Use
  Company Number: 2006126170

PATIENT
  Sex: Female

DRUGS (2)
  1. LIPITOR [Suspect]
  2. ANTIHYPERTENSIVES [Concomitant]

REACTIONS (2)
  - ABASIA [None]
  - MUSCLE SPASMS [None]
